FAERS Safety Report 8113288-0 (Version None)
Quarter: 2012Q1

REPORT INFORMATION
  Report Type: 
  Country: None (occurrence: None)
  Receive Date: 20120203
  Receipt Date: 20120128
  Transmission Date: 20120608
  Serious: Yes (Hospitalization, Disabling, Other)
  Sender: FDA-Public Use
  Company Number: PHHY2012EC008170

PATIENT
  Sex: Male

DRUGS (1)
  1. TEGRETOL-XR [Suspect]
     Indication: CONVULSION
     Dosage: 1 DF, TID
     Route: 048
     Dates: start: 20110814, end: 20120117

REACTIONS (4)
  - CONVULSION [None]
  - HAEMORRHAGE INTRACRANIAL [None]
  - FALL [None]
  - HEAD INJURY [None]
